FAERS Safety Report 24899747 (Version 3)
Quarter: 2025Q4

REPORT INFORMATION
  Report Type: Spontaneous
  Country: EU (occurrence: EU)
  Receive Date: 20250129
  Receipt Date: 20251105
  Transmission Date: 20260118
  Serious: Yes (Other)
  Sender: SANDOZ
  Company Number: EU-CHEPLA-2025000902

PATIENT
  Age: 82 Year
  Sex: Female

DRUGS (14)
  1. AMOXICILLIN [Suspect]
     Active Substance: AMOXICILLIN
     Indication: Product used for unknown indication
     Dosage: 1 G 3 TIMES DAILYUNK
     Route: 065
     Dates: start: 20220823, end: 20220830
  2. CITALOPRAM [Suspect]
     Active Substance: CITALOPRAM
     Indication: Product used for unknown indication
     Dosage: UNK
     Route: 065
  3. CLOZAPINE [Suspect]
     Active Substance: CLOZAPINE
     Indication: Product used for unknown indication
     Dosage: UNK
     Route: 065
  4. ECONAZOLE NITRATE [Suspect]
     Active Substance: ECONAZOLE NITRATE
     Indication: Product used for unknown indication
     Dosage: UNK
     Route: 065
  5. ECONAZOLE NITRATE [Suspect]
     Active Substance: ECONAZOLE NITRATE
     Indication: Product used for unknown indication
  6. ELIQUIS [Suspect]
     Active Substance: APIXABAN
     Indication: Product used for unknown indication
     Dosage: 10 MG, QD, (5 MILLIGRAM MORNING AND EVENING)
     Route: 065
  7. HYDROXYUREA [Suspect]
     Active Substance: HYDROXYUREA
     Dosage: 2 DOSAGE FORM, (2 DOSAGE FORM TWO TABLETS PER DAY, EVERY 1 DAYS)
     Route: 065
     Dates: start: 20220801
  8. HYDROXYUREA [Suspect]
     Active Substance: HYDROXYUREA
     Indication: Product used for unknown indication
     Dosage: 2 DOSAGE FORM, (2 DOSAGE FORM TWO TABLETS PER DAY, EVERY 1 DAYS)
     Route: 065
     Dates: start: 200507
  9. KARDEGIC [Suspect]
     Active Substance: ASPIRIN DL-LYSINE
     Indication: Product used for unknown indication
     Dosage: UNK
     Route: 065
  10. FUROSEMIDE [Suspect]
     Active Substance: FUROSEMIDE
     Indication: Product used for unknown indication
     Dosage: 120 MG, QD, (120 MILLIGRAM EVERY 1 DAYS)
     Route: 065
  11. FUROSEMIDE [Suspect]
     Active Substance: FUROSEMIDE
     Dosage: 40 MG, QD, (40 MILLIGRAM EVERY 1 DAYS)
     Route: 065
  12. SINEMET [Suspect]
     Active Substance: CARBIDOPA\LEVODOPA
     Indication: Product used for unknown indication
     Dosage: UNK
     Route: 065
  13. ANAGRELIDE HYDROCHLORIDE [Suspect]
     Active Substance: ANAGRELIDE HYDROCHLORIDE
     Indication: Product used for unknown indication
     Dosage: UNK
     Route: 065
  14. PEGASYS [Concomitant]
     Active Substance: PEGINTERFERON ALFA-2A
     Indication: Product used for unknown indication
     Dosage: UNK, QW, (9 UG 90 MICRO G, ONCE IN A WEEK, EVERY 1 WEEK)
     Route: 065

REACTIONS (8)
  - Parkinson^s disease [Unknown]
  - Renal failure [Unknown]
  - Pyelonephritis [Unknown]
  - Dementia [Unknown]
  - Skin ulcer [Unknown]
  - Angiodermatitis [Unknown]
  - COVID-19 [Unknown]
  - Hypertension [Unknown]
